FAERS Safety Report 5225635-8 (Version None)
Quarter: 2007Q1

REPORT INFORMATION
  Report Type: 
  Country: None (occurrence: None)
  Receive Date: 20061201
  Receipt Date: 20060906
  Transmission Date: 20070707
  Serious: Yes (Other)
  Sender: FDA-Public Use
  Company Number: US200605003222

PATIENT
  Age: 55 Year
  Sex: Female
  Weight: 105.2 kg

DRUGS (9)
  1. CYMBALTA [Suspect]
     Indication: FIBROMYALGIA
     Dosage: SEE IMAGE
     Dates: end: 20060601
  2. CYMBALTA [Suspect]
     Indication: FIBROMYALGIA
     Dosage: SEE IMAGE
     Dates: start: 20041203
  3. AVINZA /USA/ (MORPHINE SULFATE) [Concomitant]
  4. PREVACID [Concomitant]
  5. CLARITIN /USA/ (LORATADINE) [Concomitant]
  6. ZOCOR [Concomitant]
  7. TRAZODONE HCL [Concomitant]
  8. NAPROXYN /NOR/ (NAPROXEN) [Concomitant]
  9. PIRAMIDONE (METAMIZOLE SODIUM) [Concomitant]

REACTIONS (7)
  - CRYING [None]
  - DRUG INEFFECTIVE [None]
  - DYSSTASIA [None]
  - FIBROMYALGIA [None]
  - NAUSEA [None]
  - OEDEMA PERIPHERAL [None]
  - WEIGHT INCREASED [None]
